FAERS Safety Report 5205368-4 (Version None)
Quarter: 2007Q1

REPORT INFORMATION
  Report Type: 
  Country: None (occurrence: None)
  Receive Date: 20070110
  Receipt Date: 20070103
  Transmission Date: 20070707
  Serious: Yes (Hospitalization)
  Sender: FDA-Public Use
  Company Number: FR-MERCK-0610FRA00069

PATIENT
  Age: 71 Year
  Sex: Male

DRUGS (3)
  1. PRIMAXIN [Suspect]
     Indication: SKIN INFECTION
     Route: 042
     Dates: start: 20060728, end: 20060810
  2. CIPROFLOXACIN HYDROCHLORIDE [Suspect]
     Indication: SKIN INFECTION
     Route: 042
     Dates: start: 20060727, end: 20060807
  3. CLAVULANATE POTASSIUM AND TICARCILLIN DISODIUM [Concomitant]
     Indication: SKIN INFECTION
     Route: 041
     Dates: start: 20060801, end: 20060804

REACTIONS (2)
  - OEDEMA PERIPHERAL [None]
  - SKIN EXFOLIATION [None]
